FAERS Safety Report 13089352 (Version 1)
Quarter: 2017Q1

REPORT INFORMATION
  Report Type: Report from Study
  Country: US (occurrence: US)
  Receive Date: 20170105
  Receipt Date: 20170105
  Transmission Date: 20170428
  Serious: Yes (Other)
  Sender: FDA-Public Use
  Company Number: US-GILEAD-2017-0251673

PATIENT
  Sex: Female

DRUGS (2)
  1. OLYSIO [Concomitant]
     Active Substance: SIMEPREVIR
     Indication: CHRONIC HEPATITIS C
     Route: 065
  2. SOFOSBUVIR [Suspect]
     Active Substance: SOFOSBUVIR
     Indication: CHRONIC HEPATITIS C
     Dosage: 1 DF, QD
     Route: 048

REACTIONS (6)
  - Restlessness [Unknown]
  - Diarrhoea [Unknown]
  - Gallbladder perforation [Recovered/Resolved]
  - Malaise [Unknown]
  - Gallbladder enlargement [Recovered/Resolved]
  - Abdominal discomfort [Unknown]
